FAERS Safety Report 9843456 (Version 1)
Quarter: 2013Q4

REPORT INFORMATION
  Report Type: Spontaneous
  Country: US (occurrence: None)
  Receive Date: 20131219
  Receipt Date: 20131219
  Transmission Date: 20140711
  Serious: Yes (Death)
  Sender: FDA-Public Use
  Company Number: 163-20785-13081870

PATIENT
  Age: 58 Year
  Sex: Male

DRUGS (6)
  1. THALOMID (THALIDOMIDE) (200 MILLIGRAM, CAPSULES) [Suspect]
     Indication: NEOPLASM MALIGNANT
     Dosage: 1 IN 1 D
     Route: 048
     Dates: start: 20130530
  2. VALCYTE [Concomitant]
  3. FLOMAX [Concomitant]
  4. COLACE [Concomitant]
  5. PREDNISONE [Concomitant]
  6. VORICONAZOLE [Concomitant]

REACTIONS (1)
  - Death [None]
